FAERS Safety Report 5270251-5 (Version None)
Quarter: 2007Q1

REPORT INFORMATION
  Report Type: 
  Country: None (occurrence: None)
  Receive Date: 20070320
  Receipt Date: 20011001
  Transmission Date: 20070707
  Serious: Yes (Life-Threatening)
  Sender: FDA-Public Use
  Company Number: US-BRISTOL-MYERS SQUIBB COMPANY-13580758

PATIENT
  Age: 49 Year
  Sex: Male

DRUGS (10)
  1. SUSTIVA [Suspect]
     Indication: HIV INFECTION
     Dates: start: 19980201
  2. STAVUDINE [Concomitant]
  3. DIDANOSINE [Concomitant]
  4. INDINIVIR SULFATE [Concomitant]
  5. NELFINAVIR [Concomitant]
  6. HYDROXYUREA [Concomitant]
     Dates: start: 19980506
  7. LAMIVUDINE [Concomitant]
  8. RITONAVIR [Concomitant]
  9. SAQUINAVIR [Concomitant]
  10. ADEFOVIR DIPIVOXIL KIT [Concomitant]

REACTIONS (2)
  - BLOOD CREATINE PHOSPHOKINASE INCREASED [None]
  - BLOOD TRIGLYCERIDES INCREASED [None]
